FAERS Safety Report 11248384 (Version 1)
Quarter: 2015Q3

REPORT INFORMATION
  Report Type: Spontaneous
  Country: US (occurrence: US)
  Receive Date: 20150708
  Receipt Date: 20150708
  Transmission Date: 20151125
  Serious: No
  Sender: FDA-Public Use
  Company Number: US-ELI_LILLY_AND_COMPANY-US200904000118

PATIENT
  Sex: Female
  Weight: 73.92 kg

DRUGS (2)
  1. PROZAC [Suspect]
     Active Substance: FLUOXETINE HYDROCHLORIDE
     Dosage: UNK, UNKNOWN
     Route: 065
  2. RISPERDAL [Concomitant]
     Active Substance: RISPERIDONE
     Dosage: UNK, UNKNOWN
     Route: 065

REACTIONS (1)
  - Weight increased [Unknown]
